FAERS Safety Report 9412172 (Version 2)
Quarter: 2013Q3

REPORT INFORMATION
  Report Type: Report from Study
  Country: CO (occurrence: CO)
  Receive Date: 20130722
  Receipt Date: 20130913
  Transmission Date: 20140515
  Serious: Yes (Other)
  Sender: FDA-Public Use
  Company Number: CO-ROCHE-1251292

PATIENT
  Age: 26 Year
  Sex: Female

DRUGS (1)
  1. CELLCEPT [Suspect]
     Indication: RENAL TRANSPLANT
     Route: 048
     Dates: start: 20101112, end: 201305

REACTIONS (1)
  - Transplant rejection [Recovered/Resolved with Sequelae]
